FAERS Safety Report 4774155-3 (Version None)
Quarter: 2005Q3

REPORT INFORMATION
  Report Type: 
  Country: None (occurrence: None)
  Receive Date: 20050914
  Receipt Date: 20050401
  Transmission Date: 20060218
  Serious: Yes (Other)
  Sender: FDA-Public Use
  Company Number: 163-20785-05040186

PATIENT
  Sex: 0

DRUGS (1)
  1. THALOMID [Suspect]
     Indication: CHRONIC LYMPHOCYTIC LEUKAEMIA
     Dosage: 200 MG DAILY ON DAY 1-14 INCREASING BY 200MG EVERY 2 WEEKS UP TO 1000 MG, ORAL
     Route: 048
     Dates: start: 20010321

REACTIONS (1)
  - NEUTROPHIL COUNT DECREASED [None]
